FAERS Safety Report 8420765-1 (Version None)
Quarter: 2012Q2

REPORT INFORMATION
  Report Type: 
  Country: None (occurrence: None)
  Receive Date: 20120608
  Receipt Date: 20120605
  Transmission Date: 20120825
  Serious: No
  Sender: FDA-Public Use
  Company Number: US-PFIZER INC-2012136205

PATIENT
  Age: 56 Year
  Sex: Female

DRUGS (2)
  1. LYRICA [Suspect]
     Indication: NEURALGIA
     Dosage: UNK
  2. OXYCONTIN [Suspect]
     Dosage: UNK

REACTIONS (1)
  - ABNORMAL DREAMS [None]
